FAERS Safety Report 17577669 (Version 4)
Quarter: 2021Q3

REPORT INFORMATION
  Report Type: Report from Study
  Country: US (occurrence: US)
  Receive Date: 20200324
  Receipt Date: 20210701
  Transmission Date: 20211014
  Serious: Yes (Hospitalization)
  Sender: FDA-Public Use
  Company Number: US-SHIRE-US202010474

PATIENT
  Sex: Female
  Weight: 68.03 kg

DRUGS (52)
  1. TRAZODONE [Concomitant]
     Active Substance: TRAZODONE HYDROCHLORIDE
  2. MONTELUKAST [Concomitant]
     Active Substance: MONTELUKAST SODIUM
  3. BUPROPION. [Concomitant]
     Active Substance: BUPROPION
  4. TRIAMCINOLONE ACETONIDE. [Concomitant]
     Active Substance: TRIAMCINOLONE ACETONIDE
  5. TELMISARTAN. [Concomitant]
     Active Substance: TELMISARTAN
  6. TRAMADOL. [Concomitant]
     Active Substance: TRAMADOL
  7. ACETAMINOPHEN. [Concomitant]
     Active Substance: ACETAMINOPHEN
  8. HYDROCORTISONE AND ACETIC ACID [Concomitant]
     Active Substance: ACETIC ACID\HYDROCORTISONE
  9. PROAIR [FLUTICASONE PROPIONATE] [Concomitant]
     Active Substance: FLUTICASONE PROPIONATE
  10. LOSARTAN. [Concomitant]
     Active Substance: LOSARTAN
  11. HYDROCORTISONE. [Concomitant]
     Active Substance: HYDROCORTISONE
  12. KETOROLAC TROMETHAMINE. [Concomitant]
     Active Substance: KETOROLAC TROMETHAMINE
  13. EPINEPHRINE. [Concomitant]
     Active Substance: EPINEPHRINE
  14. PREMARIN [Concomitant]
     Active Substance: ESTROGENS, CONJUGATED
  15. TIZANIDINE. [Concomitant]
     Active Substance: TIZANIDINE
  16. DESONIDE. [Concomitant]
     Active Substance: DESONIDE
  17. RESTASIS [Concomitant]
     Active Substance: CYCLOSPORINE
  18. CORTISONE ACETATE. [Concomitant]
     Active Substance: CORTISONE ACETATE
  19. LOSARTAN POTASSIUM. [Concomitant]
     Active Substance: LOSARTAN POTASSIUM
  20. ZOFRAN [Concomitant]
     Active Substance: ONDANSETRON HYDROCHLORIDE
  21. HUMAN IMMUNOGLOBULIN; HYALURONIDASE [Suspect]
     Active Substance: HUMAN IMMUNOGLOBULIN G\HYALURONIDASE RECOMBINANT HUMAN
     Dosage: 45 GRAM, EVERY 3?4 WEEKS
     Route: 058
     Dates: start: 20170419
  22. ALBUTEROL [SALBUTAMOL] [Concomitant]
     Active Substance: ALBUTEROL
  23. DOXYCYCLINE HYCLATE. [Concomitant]
     Active Substance: DOXYCYCLINE HYCLATE
  24. ALBUTEROL SULFATE. [Concomitant]
     Active Substance: ALBUTEROL SULFATE
  25. BUPROPION HCL ER [Concomitant]
     Active Substance: BUPROPION HYDROCHLORIDE
  26. HUMAN IMMUNOGLOBULIN; HYALURONIDASE [Suspect]
     Active Substance: HUMAN IMMUNOGLOBULIN G\HYALURONIDASE RECOMBINANT HUMAN
     Dosage: 45 GRAM, EVERY 3?4 WEEKS
     Route: 058
     Dates: start: 20170424
  27. DOXYCYCLINE. [Concomitant]
     Active Substance: DOXYCYCLINE
  28. FLAGYL [Concomitant]
     Active Substance: METRONIDAZOLE\METRONIDAZOLE HYDROCHLORIDE
  29. SPIRONOLACTONE. [Concomitant]
     Active Substance: SPIRONOLACTONE
  30. HYDROCODONE BITARTRATE AND ACETAMINOPHEN [Concomitant]
     Active Substance: ACETAMINOPHEN\HYDROCODONE BITARTRATE
  31. DICYCLOMINE [Concomitant]
     Active Substance: DICYCLOMINE HYDROCHLORIDE
  32. HUMAN IMMUNOGLOBULIN; HYALURONIDASE [Suspect]
     Active Substance: HUMAN IMMUNOGLOBULIN G\HYALURONIDASE RECOMBINANT HUMAN
     Indication: IMMUNODEFICIENCY COMMON VARIABLE
     Dosage: 45 GRAM, Q4WEEKS
     Route: 058
     Dates: start: 20180101
  33. LORATADINE. [Concomitant]
     Active Substance: LORATADINE
  34. AMLODIPINE [Concomitant]
     Active Substance: AMLODIPINE BESYLATE
  35. ADVAIR HFA [Concomitant]
     Active Substance: FLUTICASONE PROPIONATE\SALMETEROL XINAFOATE
  36. ADVAIR HFA [Concomitant]
     Active Substance: FLUTICASONE PROPIONATE\SALMETEROL XINAFOATE
  37. REMICADE [Concomitant]
     Active Substance: INFLIXIMAB
  38. DIPHENHYDRAMINE. [Concomitant]
     Active Substance: DIPHENHYDRAMINE
  39. NORMAL SALINE [Concomitant]
     Active Substance: SODIUM CHLORIDE
  40. CORTISONE [Concomitant]
     Active Substance: CORTISONE
  41. ZOFRAN [Concomitant]
     Active Substance: ONDANSETRON HYDROCHLORIDE
  42. FLUTICASONE. [Concomitant]
     Active Substance: FLUTICASONE
  43. FAMOTIDINE. [Concomitant]
     Active Substance: FAMOTIDINE
  44. HYDRALAZINE [Concomitant]
     Active Substance: HYDRALAZINE HYDROCHLORIDE
  45. LIDOCAINE. [Concomitant]
     Active Substance: LIDOCAINE
  46. SODIUM CHLORIDE. [Concomitant]
     Active Substance: SODIUM CHLORIDE
  47. TRIAMCINOLONE [Concomitant]
     Active Substance: TRIAMCINOLONE
  48. GABAPENTIN. [Concomitant]
     Active Substance: GABAPENTIN
  49. TRETINOIN. [Concomitant]
     Active Substance: TRETINOIN
  50. VENTOLIN HFA [Concomitant]
     Active Substance: ALBUTEROL SULFATE
  51. FOLIC ACID. [Concomitant]
     Active Substance: FOLIC ACID
  52. VITAMIN D NOS [Concomitant]
     Active Substance: VITAMIN D NOS

REACTIONS (5)
  - Infusion site extravasation [Unknown]
  - Spinal operation [Unknown]
  - Respiratory disorder [Unknown]
  - Urinary tract infection [Unknown]
  - Blood potassium decreased [Unknown]
